FAERS Safety Report 15706770 (Version 4)
Quarter: 2019Q2

REPORT INFORMATION
  Report Type: Spontaneous
  Country: US (occurrence: US)
  Receive Date: 20181210
  Receipt Date: 20190501
  Transmission Date: 20190711
  Serious: Yes (Death, Hospitalization)
  Sender: FDA-Public Use
  Company Number: US-ACTELION-A-NJ2018-183413

PATIENT
  Age: 84 Year
  Sex: Female
  Weight: 48.98 kg

DRUGS (5)
  1. TRACLEER [Suspect]
     Active Substance: BOSENTAN
     Indication: PULMONARY HYPERTENSION
     Dosage: 125 MG, BID
     Route: 048
  2. REMODULIN [Concomitant]
     Active Substance: TREPROSTINIL
     Dosage: UNK
     Dates: end: 20190305
  3. COUMADIN [Concomitant]
     Active Substance: WARFARIN SODIUM
  4. TADALAFIL. [Concomitant]
     Active Substance: TADALAFIL
  5. NIFEDIPINE. [Concomitant]
     Active Substance: NIFEDIPINE

REACTIONS (4)
  - Fall [Unknown]
  - Hospice care [Unknown]
  - Sepsis [Unknown]
  - Death [Fatal]

NARRATIVE: CASE EVENT DATE: 20190310
